FAERS Safety Report 4456547-5 (Version None)
Quarter: 2004Q3

REPORT INFORMATION
  Report Type: 
  Country: None (occurrence: None)
  Receive Date: 20040921
  Receipt Date: 20040824
  Transmission Date: 20050211
  Serious: Yes (Hospitalization)
  Sender: FDA-Public Use
  Company Number: 061-0981-M0000088

PATIENT
  Age: 73 Year
  Sex: Female
  Weight: 76 kg

DRUGS (11)
  1. ATORVASTATIN (ATORVASTATIN) [Suspect]
     Indication: HYPERLIPIDAEMIA
     Dosage: SEE IMAGE
     Route: 048
     Dates: start: 19990520, end: 19990727
  2. ATORVASTATIN (ATORVASTATIN) [Suspect]
     Indication: HYPERLIPIDAEMIA
     Dosage: SEE IMAGE
     Route: 048
     Dates: start: 19990728
  3. WARFARIN (WARFARIN) [Concomitant]
  4. CALCIUM CARBONATE (CALCIUM CARBONATE) [Concomitant]
  5. INDAPAMIDE HEMIHYDRATE (INDAPAMIDE HEMIHYDRATE) [Concomitant]
  6. DILTIAZEM [Concomitant]
  7. ATENOLOL [Concomitant]
  8. ISOSORBIDE MONONITRATE [Concomitant]
  9. BUDESONIDE (BUDESONIDE) [Concomitant]
  10. ESTROGENS (ESTROGENS) [Concomitant]
  11. ESTROPIPATE [Concomitant]

REACTIONS (2)
  - BRONCHITIS VIRAL [None]
  - INTERNATIONAL NORMALISED RATIO INCREASED [None]
